FAERS Safety Report 10275437 (Version 1)
Quarter: 2014Q2

REPORT INFORMATION
  Report Type: Spontaneous
  Country: US (occurrence: None)
  Receive Date: 20140630
  Receipt Date: 20140630
  Transmission Date: 20141212
  Serious: Yes (Hospitalization)
  Sender: FDA-Public Use
  Company Number: None

PATIENT
  Age: 12 Year
  Sex: Male
  Weight: 56.3 kg

DRUGS (6)
  1. DAUNORUBICIN [Suspect]
     Dates: end: 20140421
  2. PREDNISONE [Suspect]
     Dates: end: 20140510
  3. METHOTREXATE [Suspect]
     Dates: end: 20140430
  4. CYTARABINE [Suspect]
     Dates: end: 20140421
  5. PEG-L-ASPARAGINASE (PEGASPARGASE, ONCOSPAR) [Suspect]
     Dates: end: 20140426
  6. VINCRISTINE SULFATE [Suspect]
     Dates: end: 20140507

REACTIONS (12)
  - Hypotension [None]
  - Pseudomonas test positive [None]
  - Bacteroides test positive [None]
  - Hyponatraemia [None]
  - Tachypnoea [None]
  - Abdominal abscess [None]
  - Hyponatraemia [None]
  - Inflammation [None]
  - Gastrointestinal perforation [None]
  - Phlebitis [None]
  - Constipation [None]
  - Drug intolerance [None]
